FAERS Safety Report 9843477 (Version 1)
Quarter: 2013Q4

REPORT INFORMATION
  Report Type: Spontaneous
  Country: US (occurrence: None)
  Receive Date: 20131223
  Receipt Date: 20131223
  Transmission Date: 20140711
  Serious: Yes (Other)
  Sender: FDA-Public Use
  Company Number: 220117LEO

PATIENT
  Age: 62 Year
  Sex: Female

DRUGS (4)
  1. PICATO [Suspect]
     Indication: ACTINIC KERATOSIS
     Dosage: FOR 3 DAYS
     Route: 061
     Dates: start: 20121231, end: 20121231
  2. TAMOXIFEN [Concomitant]
  3. VITAMINS (MULTIPLE VITAMINS) [Concomitant]
  4. MSMJ JOINT SUPPLMENT [Concomitant]

REACTIONS (3)
  - Application site vesicles [None]
  - Application site pain [None]
  - Incorrect drug administration duration [None]
